FAERS Safety Report 16040722 (Version 2)
Quarter: 2019Q2

REPORT INFORMATION
  Report Type: Report from Study
  Country: US (occurrence: US)
  Receive Date: 20190306
  Receipt Date: 20190424
  Transmission Date: 20190711
  Serious: Yes (Other)
  Sender: FDA-Public Use
  Company Number: PHEH2019US009026

PATIENT
  Sex: Male

DRUGS (1)
  1. ENTRESTO [Suspect]
     Active Substance: SACUBITRIL\VALSARTAN
     Indication: PRODUCT USED FOR UNKNOWN INDICATION
     Route: 048

REACTIONS (6)
  - Arrhythmia [Unknown]
  - Blood potassium increased [Unknown]
  - Blood glucose increased [Unknown]
  - Dizziness postural [Unknown]
  - Blood pressure decreased [Unknown]
  - Product dispensing error [Unknown]
